FAERS Safety Report 6678200-X (Version None)
Quarter: 2010Q2

REPORT INFORMATION
  Report Type: 
  Country: None (occurrence: None)
  Receive Date: 20100408
  Receipt Date: 20100408
  Transmission Date: 20101027
  Serious: No
  Sender: FDA-Public Use
  Company Number: None

PATIENT
  Age: 52 Year
  Sex: Female
  Weight: 92.08 kg

DRUGS (1)
  1. METFORMIN [Suspect]
     Dates: start: 20090928, end: 20100126

REACTIONS (2)
  - NAUSEA [None]
  - VOMITING [None]
